FAERS Safety Report 6991788-4 (Version None)
Quarter: 2010Q3

REPORT INFORMATION
  Report Type: 
  Country: None (occurrence: None)
  Receive Date: 20100917
  Receipt Date: 20100915
  Transmission Date: 20110219
  Serious: No
  Sender: FDA-Public Use
  Company Number: US-PFIZER INC-2010117170

PATIENT
  Sex: Male
  Weight: 72.6 kg

DRUGS (2)
  1. LIPITOR [Suspect]
     Dosage: 80 MG, UNK
     Route: 048
  2. LIPITOR [Suspect]
     Dosage: 40 MG, UNK
     Route: 048

REACTIONS (1)
  - PRURITUS [None]
